FAERS Safety Report 16957785 (Version 1)
Quarter: 2019Q4

REPORT INFORMATION
  Report Type: Spontaneous
  Country: US (occurrence: US)
  Receive Date: 20191024
  Receipt Date: 20191024
  Transmission Date: 20200122
  Serious: No
  Sender: FDA-Public Use
  Company Number: US-SA-2019SA286668

PATIENT
  Age: 52 Year
  Sex: Female

DRUGS (1)
  1. KEVZARA [Suspect]
     Active Substance: SARILUMAB
     Indication: RHEUMATOID ARTHRITIS
     Dosage: UNK UNK, QOW
     Dates: start: 20190926

REACTIONS (10)
  - Oropharyngeal pain [Unknown]
  - Fatigue [Unknown]
  - Pruritus [Unknown]
  - Hypersomnia [Unknown]
  - Arthritis [Unknown]
  - Malaise [Unknown]
  - Fall [Unknown]
  - Contusion [Unknown]
  - Dizziness [Unknown]
  - Unevaluable event [Unknown]

NARRATIVE: CASE EVENT DATE: 201910
